FAERS Safety Report 5616591-9 (Version None)
Quarter: 2008Q1

REPORT INFORMATION
  Report Type: 
  Country: None (occurrence: None)
  Receive Date: 20080207
  Receipt Date: 20070831
  Transmission Date: 20080703
  Serious: No
  Sender: FDA-Public Use
  Company Number: A0676165A

PATIENT
  Age: 75 Year
  Sex: Female

DRUGS (5)
  1. PAXIL CR [Suspect]
     Dosage: 12.5MG PER DAY
     Route: 048
     Dates: start: 20070820, end: 20070822
  2. AMBIEN [Concomitant]
  3. NORVASC [Concomitant]
  4. LOPRESSOR [Concomitant]
  5. PROMETHAZINE [Concomitant]

REACTIONS (1)
  - NIGHTMARE [None]
